FAERS Safety Report 25407490 (Version 1)
Quarter: 2025Q2

REPORT INFORMATION
  Report Type: Spontaneous
  Country: US (occurrence: None)
  Receive Date: 20250605
  Receipt Date: 20250605
  Transmission Date: 20250716
  Serious: Yes (Hospitalization, Disabling)
  Sender: FDA-CTU
  Company Number: None

PATIENT
  Age: 42 Year
  Sex: Female

DRUGS (1)
  1. VENLAFAXINE [Suspect]
     Active Substance: VENLAFAXINE HYDROCHLORIDE
     Indication: Post-traumatic stress disorder
     Route: 048
     Dates: start: 20131101, end: 20230131

REACTIONS (9)
  - Withdrawal syndrome [None]
  - Weight decreased [None]
  - Diarrhoea [None]
  - Nausea [None]
  - Brain fog [None]
  - Confusional state [None]
  - Tremor [None]
  - Electric shock sensation [None]
  - Impaired driving ability [None]

NARRATIVE: CASE EVENT DATE: 20220630
